FAERS Safety Report 9094472 (Version 6)
Quarter: 2013Q3

REPORT INFORMATION
  Report Type: Spontaneous
  Country: US (occurrence: US)
  Receive Date: 20130218
  Receipt Date: 20130918
  Transmission Date: 20140515
  Serious: Yes (Other)
  Sender: FDA-Public Use
  Company Number: US-ROCHE-621409

PATIENT
  Age: 30 Year
  Sex: Female
  Weight: 52.2 kg

DRUGS (7)
  1. ACCUTANE [Suspect]
     Indication: ACNE
     Route: 048
     Dates: start: 19861117, end: 198703
  2. ACCUTANE [Suspect]
     Route: 048
     Dates: start: 20011217, end: 20020101
  3. ACCUTANE [Suspect]
     Route: 048
     Dates: start: 20040820, end: 20041116
  4. DURICEF [Concomitant]
     Indication: ACNE
     Route: 065
  5. BENZAMYCIN [Concomitant]
     Indication: ACNE
     Route: 065
  6. ERYTHROMYCIN [Concomitant]
     Indication: ACNE
     Route: 065
  7. DOXYCYCLINE [Concomitant]
     Indication: ACNE

REACTIONS (6)
  - Colitis ulcerative [Unknown]
  - Proctitis ulcerative [Unknown]
  - Inflammatory bowel disease [Unknown]
  - Perirectal abscess [Unknown]
  - Depression [Unknown]
  - Irritable bowel syndrome [Unknown]
